FAERS Safety Report 8161182-1 (Version None)
Quarter: 2012Q1

REPORT INFORMATION
  Report Type: 
  Country: None (occurrence: None)
  Receive Date: 20120103
  Receipt Date: 20111118
  Transmission Date: 20120608
  Serious: No
  Sender: FDA-Public Use
  Company Number: AE-2011-003716

PATIENT
  Age: 60 Year
  Sex: Female
  Weight: 69.8539 kg

DRUGS (6)
  1. PHENERGAN [Concomitant]
  2. FIORINAL [Concomitant]
  3. PEGINTERFERON (PEGINTERFERON ALFA-2A_ [Concomitant]
  4. IBUPROFEN [Concomitant]
  5. INCIVEK [Suspect]
     Dosage: 2250 MG (750 MG, 1 IN 8 HR), ORAL
     Route: 048
     Dates: start: 20111114
  6. RIBAVIRIN [Concomitant]

REACTIONS (4)
  - NAUSEA [None]
  - CHILLS [None]
  - MYALGIA [None]
  - FATIGUE [None]
